FAERS Safety Report 5602486-3 (Version None)
Quarter: 2008Q1

REPORT INFORMATION
  Report Type: 
  Country: None (occurrence: None)
  Receive Date: 20080125
  Receipt Date: 20080116
  Transmission Date: 20080703
  Serious: Yes (Hospitalization)
  Sender: FDA-Public Use
  Company Number: A0663501A

PATIENT
  Age: 42 Year
  Sex: Female
  Weight: 65.4 kg

DRUGS (6)
  1. LAPATINIB [Suspect]
     Dosage: 1500MG PER DAY
     Route: 048
     Dates: start: 20070515
  2. CISPLATIN [Suspect]
     Route: 065
     Dates: end: 20070621
  3. RADIOTHERAPY [Concomitant]
  4. OMEPRAZOLE [Concomitant]
     Indication: GASTRITIS PROPHYLAXIS
     Dosage: 40MG VARIABLE DOSE
     Route: 048
     Dates: start: 20070711, end: 20070713
  5. RANITIDINE [Concomitant]
     Indication: GASTRITIS PROPHYLAXIS
     Dosage: 50MG TWICE PER DAY
     Route: 042
     Dates: start: 20070714, end: 20070718
  6. FUROSEMIDE [Concomitant]

REACTIONS (7)
  - ANOREXIA [None]
  - ASTHENIA [None]
  - DEHYDRATION [None]
  - HYPERGLYCAEMIA [None]
  - HYPERNATRAEMIA [None]
  - RENAL FAILURE [None]
  - SINUS TACHYCARDIA [None]
